FAERS Safety Report 9282360 (Version 1)
Quarter: 2013Q2

REPORT INFORMATION
  Report Type: Spontaneous
  Country: IN (occurrence: IN)
  Receive Date: 20130510
  Receipt Date: 20130510
  Transmission Date: 20140414
  Serious: Yes (Other)
  Sender: FDA-Public Use
  Company Number: IN-SUN PHARMACEUTICAL INDUSTRIES LTD-2013SUN00564

PATIENT
  Age: 52 Year
  Sex: Male

DRUGS (2)
  1. VENLAFAXINE HYDROCHLORIDE 100MG TABLET [Suspect]
     Indication: MAJOR DEPRESSION
     Dosage: 225 MG, QD
     Route: 065
  2. BUPROPION HYDROCHLORIDE EXTENDED-RELEASE TABLETS, USP (SR) 100MG [Interacting]
     Indication: MAJOR DEPRESSION
     Route: 065

REACTIONS (6)
  - Drug interaction [None]
  - Suicidal ideation [None]
  - Anxiety [None]
  - Restlessness [None]
  - Agitation [None]
  - Blood pressure increased [Unknown]
